FAERS Safety Report 8173278-9 (Version None)
Quarter: 2012Q1

REPORT INFORMATION
  Report Type: 
  Country: None (occurrence: None)
  Receive Date: 20120229
  Receipt Date: 20120223
  Transmission Date: 20120608
  Serious: Yes (Other)
  Sender: FDA-Public Use
  Company Number: US-JNJFOC-20120212399

PATIENT
  Sex: Female

DRUGS (6)
  1. ASTHMADEX [Concomitant]
     Indication: ASTHMA
     Route: 048
  2. LEVAQUIN [Suspect]
     Route: 048
     Dates: start: 20110301, end: 20110101
  3. STEROIDS NOS [Concomitant]
     Route: 065
  4. LEVAQUIN [Suspect]
     Indication: UPPER RESPIRATORY TRACT INFECTION BACTERIAL
     Route: 048
  5. THYROID THERAPY [Concomitant]
     Indication: THYROID DISORDER
     Route: 065
  6. LEVAQUIN [Suspect]
     Route: 048
     Dates: start: 20120214

REACTIONS (5)
  - INFLAMMATION [None]
  - BLOOD GLUCOSE DECREASED [None]
  - MALAISE [None]
  - TENDON RUPTURE [None]
  - DRUG DOSE OMISSION [None]
